FAERS Safety Report 10185424 (Version 4)
Quarter: 2015Q2

REPORT INFORMATION
  Report Type: Spontaneous
  Country: US (occurrence: US)
  Receive Date: 20140521
  Receipt Date: 20150616
  Transmission Date: 20150821
  Serious: No
  Sender: FDA-Public Use
  Company Number: US-PFIZER INC-2014138566

PATIENT
  Age: 76 Year
  Sex: Female
  Weight: 76 kg

DRUGS (3)
  1. CORTEF [Suspect]
     Active Substance: HYDROCORTISONE
     Dosage: FOR 39 YEARS
  2. LEVOXYL [Suspect]
     Active Substance: LEVOTHYROXINE SODIUM
     Dosage: UNK
  3. LYRICA [Suspect]
     Active Substance: PREGABALIN
     Dosage: UNK
     Dates: start: 201405

REACTIONS (4)
  - Amnesia [Unknown]
  - Eye disorder [Unknown]
  - Malaise [Unknown]
  - Headache [Unknown]
